FAERS Safety Report 7716301-5 (Version None)
Quarter: 2011Q3

REPORT INFORMATION
  Report Type: 
  Country: None (occurrence: None)
  Receive Date: 20110829
  Receipt Date: 20110815
  Transmission Date: 20111222
  Serious: Yes (Other)
  Sender: FDA-Public Use
  Company Number: PHHY2011BR74205

PATIENT
  Sex: Female

DRUGS (7)
  1. INSULIN [Concomitant]
     Dosage: 30 U, BID
  2. RASILEZ [Suspect]
  3. TENORMIN [Suspect]
     Indication: HYPERTENSION
     Dosage: 2 DF, A DAY
  4. GALVUS [Concomitant]
     Indication: DIABETES MELLITUS
     Dosage: 2 DF, A DAY
  5. SYNTHROID [Concomitant]
     Indication: HYPOTHYROIDISM
     Dosage: 1 DF, QD
  6. DIOVAN HCT [Suspect]
     Indication: HYPERTENSION
     Dosage: 1 DF, QD
  7. ASPIRIN [Concomitant]
     Indication: PROPHYLAXIS
     Dosage: 1 DF, QD

REACTIONS (5)
  - SPINAL FRACTURE [None]
  - FALL [None]
  - DRUG INEFFECTIVE [None]
  - BLOOD PRESSURE INCREASED [None]
  - EMOTIONAL DISTRESS [None]
